FAERS Safety Report 17996554 (Version 2)
Quarter: 2022Q2

REPORT INFORMATION
  Report Type: Spontaneous
  Country: FR (occurrence: FR)
  Receive Date: 20200708
  Receipt Date: 20220615
  Transmission Date: 20220721
  Serious: Yes (Other)
  Sender: FDA-Public Use
  Company Number: None

PATIENT
  Age: 24 Year
  Sex: Female
  Weight: 31 kg

DRUGS (7)
  1. FYCOMPA [Suspect]
     Active Substance: PERAMPANEL
     Indication: Epilepsy
     Dosage: UNKNOWN DOSE AND FREQUENCY
     Route: 048
     Dates: start: 201710
  2. FYCOMPA [Suspect]
     Active Substance: PERAMPANEL
     Dosage: UNKNOWN REDUCED DOSE
     Route: 048
  3. GAVISCON [Concomitant]
     Active Substance: ALUMINUM HYDROXIDE\MAGNESIUM CARBONATE
     Indication: Product used for unknown indication
     Dosage: DOSE AND FREQUENCY NOT PROVIDED
     Route: 048
  4. TRIMEBUTINE MALEATE [Concomitant]
     Active Substance: TRIMEBUTINE MALEATE
     Indication: Product used for unknown indication
     Dosage: DOSE AND FREQUENCY NOT PROVIDED
     Route: 048
  5. KEPPRA [Concomitant]
     Active Substance: LEVETIRACETAM
     Indication: Epilepsy
     Dosage: DOSE AND FREQUENCY NOT PROVIDED
     Route: 048
  6. CLOBAZAM [Concomitant]
     Active Substance: CLOBAZAM
     Indication: Epilepsy
     Route: 048
  7. POLYETHYLENE GLYCOLS [Concomitant]
     Active Substance: POLYETHYLENE GLYCOLS
     Indication: Product used for unknown indication
     Dosage: DOSE AND FREQUENCY NOT PROVIDED
     Route: 048

REACTIONS (4)
  - Insomnia [Recovering/Resolving]
  - Salivary hypersecretion [Recovering/Resolving]
  - Gastrointestinal motility disorder [Recovering/Resolving]
  - Agitation [Recovering/Resolving]
